FAERS Safety Report 16953913 (Version 2)
Quarter: 2020Q1

REPORT INFORMATION
  Report Type: Spontaneous
  Country: US (occurrence: US)
  Receive Date: 20191023
  Receipt Date: 20200122
  Transmission Date: 20200409
  Serious: No
  Sender: FDA-Public Use
  Company Number: US-ABBVIE-19K-163-2956717-00

PATIENT

DRUGS (1)
  1. ORILISSA [Suspect]
     Active Substance: ELAGOLIX SODIUM
     Indication: PRODUCT USED FOR UNKNOWN INDICATION
     Route: 048

REACTIONS (12)
  - Dyspareunia [Unknown]
  - Pollakiuria [Unknown]
  - Abdominal distension [Unknown]
  - Endometriosis [Unknown]
  - Pelvic pain [Recovering/Resolving]
  - Adverse drug reaction [Unknown]
  - Abnormal behaviour [Unknown]
  - Dysmenorrhoea [Unknown]
  - Impaired quality of life [Unknown]
  - Cystitis interstitial [Unknown]
  - Malaise [Unknown]
  - Pain [Unknown]
